FAERS Safety Report 19060848 (Version 5)
Quarter: 2021Q2

REPORT INFORMATION
  Report Type: Report from Study
  Country: KR (occurrence: KR)
  Receive Date: 20210325
  Receipt Date: 20210614
  Transmission Date: 20210717
  Serious: Yes (Hospitalization)
  Sender: FDA-Public Use
  Company Number: KR-EISAI MEDICAL RESEARCH-EC-2021-090099

PATIENT
  Age: 53 Year
  Sex: Female
  Weight: 60 kg

DRUGS (14)
  1. KEPPRA [Concomitant]
     Active Substance: LEVETIRACETAM
     Dates: start: 20180928
  2. DULCOLAX NOS [Concomitant]
     Active Substance: BISACODYL OR DOCUSATE SODIUM
     Dates: start: 20210309
  3. NORVASC [Concomitant]
     Active Substance: AMLODIPINE BESYLATE
     Dates: start: 20181003
  4. DUPHALAC [Concomitant]
     Active Substance: LACTULOSE
     Dates: start: 20100224
  5. LOPERAMIDE [Concomitant]
     Active Substance: LOPERAMIDE
     Dates: start: 20210204
  6. LASIX [Concomitant]
     Active Substance: FUROSEMIDE
     Dates: start: 20210317, end: 20210317
  7. TANTUM [Concomitant]
     Active Substance: BENZYDAMINE HYDROCHLORIDE
     Dates: start: 20210204
  8. LENVATINIB [Suspect]
     Active Substance: LENVATINIB
     Indication: GLIOBLASTOMA
     Route: 048
     Dates: start: 20210203, end: 20210316
  9. PEMBROLIZUMAB. [Suspect]
     Active Substance: PEMBROLIZUMAB
     Indication: GLIOBLASTOMA
     Route: 041
     Dates: start: 20210203, end: 20210203
  10. PEMBROLIZUMAB. [Suspect]
     Active Substance: PEMBROLIZUMAB
     Route: 041
     Dates: start: 20210224, end: 20210224
  11. MAGNESIUM [Concomitant]
     Active Substance: MAGNESIUM
     Dates: start: 20210204
  12. MYPOL [Concomitant]
     Dates: start: 20210204
  13. DUPHALAC [Concomitant]
     Active Substance: LACTULOSE
     Dates: start: 20210309
  14. MACPERAN [Concomitant]
     Active Substance: METOCLOPRAMIDE HYDROCHLORIDE
     Dates: start: 20210204

REACTIONS (2)
  - Pyrexia [Recovered/Resolved]
  - Hypernatraemia [Recovered/Resolved]

NARRATIVE: CASE EVENT DATE: 20210317
